FAERS Safety Report 4616614-X (Version None)
Quarter: 2005Q1

REPORT INFORMATION
  Report Type: 
  Country: None (occurrence: None)
  Receive Date: 20050318
  Receipt Date: 20050124
  Transmission Date: 20050727
  Serious: Yes (Hospitalization)
  Sender: FDA-Public Use
  Company Number: 2005BI001468

PATIENT
  Age: 43 Year
  Sex: Male
  Weight: 71.6683 kg

DRUGS (11)
  1. AVONEX [Suspect]
     Indication: RELAPSING-REMITTING MULTIPLE SCLEROSIS
     Dosage: 30 UG; QW; IM
     Route: 030
     Dates: start: 20000201
  2. NATALIZUMAB [Suspect]
     Indication: RELAPSING-REMITTING MULTIPLE SCLEROSIS
     Dosage: 300 MG; QM; IV
     Route: 042
     Dates: start: 20041217, end: 20050114
  3. WELLBUTRIN [Concomitant]
  4. PROVIGIL [Concomitant]
  5. SKELAXIN [Concomitant]
  6. VIAGRA [Concomitant]
  7. AMBIEN [Concomitant]
  8. ALEVE [Concomitant]
  9. VITAMIN C [Concomitant]
  10. TYLENOL (CAPLET) [Concomitant]
  11. VITAMIN E [Concomitant]

REACTIONS (4)
  - ANGIONEUROTIC OEDEMA [None]
  - CHEST PAIN [None]
  - DYSPEPSIA [None]
  - RASH PRURITIC [None]
